FAERS Safety Report 10286524 (Version 1)
Quarter: 2014Q3

REPORT INFORMATION
  Report Type: Spontaneous
  Country: SI (occurrence: SI)
  Receive Date: 20140709
  Receipt Date: 20140709
  Transmission Date: 20150326
  Serious: Yes (Life-Threatening)
  Sender: FDA-Public Use
  Company Number: PHHY2014SI081863

PATIENT
  Age: 63 Year
  Sex: Male

DRUGS (4)
  1. LEKOPTIN [Suspect]
     Active Substance: VERAPAMIL HYDROCHLORIDE
     Indication: TACHYCARDIA
     Dosage: 80 MG, UNK
     Route: 048
     Dates: start: 20140518, end: 20140518
  2. AMIODARONE [Suspect]
     Active Substance: AMIODARONE
     Indication: TACHYCARDIA
     Route: 042
     Dates: start: 20140516, end: 20140518
  3. LANITOP [Suspect]
     Active Substance: METILDIGOXIN
     Indication: TACHYCARDIA
     Route: 048
     Dates: start: 20140518, end: 20140518
  4. BISOPROLOL FUMARATE. [Concomitant]
     Active Substance: BISOPROLOL FUMARATE
     Indication: TACHYCARDIA
     Dates: start: 20140516

REACTIONS (2)
  - Conduction disorder [Recovered/Resolved]
  - Circulatory collapse [Recovered/Resolved]

NARRATIVE: CASE EVENT DATE: 20140518
